FAERS Safety Report 16528617 (Version 1)
Quarter: 2019Q3

REPORT INFORMATION
  Report Type: Report from Study
  Country: JP (occurrence: JP)
  Receive Date: 20190703
  Receipt Date: 20190703
  Transmission Date: 20191004
  Serious: Yes (Disabling, Other)
  Sender: FDA-Public Use
  Company Number: JP-BIOGEN-2019BI00757505

PATIENT
  Age: 24 Year
  Sex: Female

DRUGS (7)
  1. TECFIDERA [Suspect]
     Active Substance: DIMETHYL FUMARATE
     Dosage: 120/240 MG
     Route: 048
     Dates: start: 20180529, end: 20180604
  2. CEFAZOLIN [Suspect]
     Active Substance: CEFAZOLIN
     Indication: DEVICE RELATED INFECTION
     Route: 042
     Dates: start: 20180929, end: 20181111
  3. TECFIDERA [Suspect]
     Active Substance: DIMETHYL FUMARATE
     Route: 048
     Dates: start: 20180522, end: 20180528
  4. TECFIDERA [Suspect]
     Active Substance: DIMETHYL FUMARATE
     Indication: RELAPSING-REMITTING MULTIPLE SCLEROSIS
     Route: 048
     Dates: start: 20180515, end: 20180521
  5. METHYLPREDNISOLONE SODIUM SUCCINATE. [Concomitant]
     Active Substance: METHYLPREDNISOLONE SODIUM SUCCINATE
     Indication: RELAPSING-REMITTING MULTIPLE SCLEROSIS
     Route: 042
     Dates: start: 20180905, end: 20180909
  6. TECFIDERA [Suspect]
     Active Substance: DIMETHYL FUMARATE
     Route: 048
     Dates: start: 20180605, end: 20181022
  7. FINGOLIMOD HYDROCHLORIDE [Suspect]
     Active Substance: FINGOLIMOD HYDROCHLORIDE
     Indication: MULTIPLE SCLEROSIS
     Route: 065
     Dates: end: 20180515

REACTIONS (8)
  - Gamma-glutamyltransferase increased [Recovered/Resolved]
  - White blood cell count decreased [Recovered/Resolved]
  - Therapeutic product effect incomplete [Unknown]
  - Multiple sclerosis relapse [Recovered/Resolved with Sequelae]
  - Lymphocyte count decreased [Recovered/Resolved]
  - Device related infection [Recovered/Resolved]
  - C-reactive protein increased [Recovered/Resolved]
  - Lymphocyte count decreased [Recovered/Resolved]

NARRATIVE: CASE EVENT DATE: 2018
